FAERS Safety Report 5117164-7 (Version None)
Quarter: 2006Q3

REPORT INFORMATION
  Report Type: 
  Country: None (occurrence: None)
  Receive Date: 20060927
  Receipt Date: 20060927
  Transmission Date: 20061208
  Serious: No
  Sender: FDA-Public Use
  Company Number: None

PATIENT
  Age: 64 Year
  Sex: Female

DRUGS (3)
  1. PHENERGAN [Suspect]
     Indication: DIZZINESS
     Dosage: 25 MG ONCE IV
     Route: 042
     Dates: start: 20051117
  2. PHENERGAN [Suspect]
     Indication: NAUSEA
     Dosage: 25 MG ONCE IV
     Route: 042
     Dates: start: 20051117
  3. PHENERGAN [Suspect]
     Indication: VOMITING
     Dosage: 25 MG ONCE IV
     Route: 042
     Dates: start: 20051117

REACTIONS (4)
  - CELLULITIS [None]
  - DRUG HYPERSENSITIVITY [None]
  - ERYTHEMA [None]
  - OEDEMA PERIPHERAL [None]
